FAERS Safety Report 4538388-3 (Version None)
Quarter: 2004Q4

REPORT INFORMATION
  Report Type: 
  Country: None (occurrence: None)
  Receive Date: 20041223
  Receipt Date: 20041223
  Transmission Date: 20050328
  Serious: Yes (Life-Threatening)
  Sender: FDA-Public Use
  Company Number: None

PATIENT
  Age: 17 Year
  Weight: 88.7 kg

DRUGS (3)
  1. KOATE [Suspect]
     Indication: VON WILLEBRAND'S DISEASE
     Dosage: 3220 UNITS
     Dates: start: 20040917
  2. KOATE [Suspect]
  3. KOATE [Suspect]

REACTIONS (8)
  - CARDIO-RESPIRATORY ARREST [None]
  - COMA [None]
  - DIZZINESS [None]
  - EYE ROLLING [None]
  - HEART RATE INCREASED [None]
  - HYPERHIDROSIS [None]
  - HYPOTENSION [None]
  - INFUSION RELATED REACTION [None]
